FAERS Safety Report 11394366 (Version 1)
Quarter: 2015Q3

REPORT INFORMATION
  Report Type: Spontaneous
  Country: US (occurrence: None)
  Receive Date: 20150817
  Receipt Date: 20150817
  Transmission Date: 20151125
  Serious: Yes (Other)
  Sender: FDA-Public Use
  Company Number: None

PATIENT
  Age: 52 Year
  Sex: Female
  Weight: 63.5 kg

DRUGS (1)
  1. BELSOMRA [Suspect]
     Active Substance: SUVOREXANT

REACTIONS (10)
  - Abnormal dreams [None]
  - Dysarthria [None]
  - Head discomfort [None]
  - Moaning [None]
  - Insomnia [None]
  - Feeling abnormal [None]
  - Fatigue [None]
  - Impatience [None]
  - Agitation [None]
  - Movement disorder [None]

NARRATIVE: CASE EVENT DATE: 20150814
